FAERS Safety Report 7895890-4 (Version None)
Quarter: 2011Q4

REPORT INFORMATION
  Report Type: 
  Country: None (occurrence: None)
  Receive Date: 20111106
  Receipt Date: 20110901
  Transmission Date: 20120403
  Serious: Yes (Other)
  Sender: FDA-Public Use
  Company Number: US-AMGEN-USASP2011035352

PATIENT
  Sex: Male
  Weight: 93 kg

DRUGS (7)
  1. SIMVASTATIN [Concomitant]
     Dosage: 40 MG, QD
  2. TRICOR [Concomitant]
     Dosage: 145 MG, QD
  3. METOPROLOL TARTRATE [Concomitant]
     Dosage: 100 MG, QD
  4. NEXIUM [Concomitant]
     Dosage: 40 MG, QD
  5. LIALDA [Concomitant]
     Dosage: 1.2 G, Q12H
  6. ENBREL [Suspect]
     Indication: PSORIASIS
     Dosage: 50 MG, 2 TIMES/WK
     Dates: start: 20030108
  7. LISINOPRIL [Concomitant]
     Dosage: 20 MG, QD

REACTIONS (1)
  - BASAL CELL CARCINOMA [None]
